FAERS Safety Report 4663894-0 (Version None)
Quarter: 2005Q2

REPORT INFORMATION
  Report Type: 
  Country: None (occurrence: None)
  Receive Date: 20050511
  Receipt Date: 20050323
  Transmission Date: 20051028
  Serious: Yes (Other)
  Sender: FDA-Public Use
  Company Number: 375227

PATIENT
  Age: 49 Year
  Sex: Female
  Weight: 65.8 kg

DRUGS (3)
  1. PEGASYS [Suspect]
     Indication: HEPATITIS C
     Dosage: 180 MCG 1 PER WEEK SUBCUTANEOUS
     Route: 058
     Dates: start: 20040423, end: 20041001
  2. COPEGUS [Suspect]
     Indication: HEPATITIS C
     Dosage: 400 MG 2 PER DAY ORAL
     Route: 048
     Dates: start: 20040423, end: 20041001
  3. TRIVORA (ETHINYL ESTRADIOL/LEVONORGESTREL) [Concomitant]

REACTIONS (29)
  - ALOPECIA [None]
  - ANAEMIA [None]
  - ANOREXIA [None]
  - ARTHRALGIA [None]
  - BLOOD CALCIUM DECREASED [None]
  - BLOOD CHLORIDE INCREASED [None]
  - BLOOD URIC ACID DECREASED [None]
  - BONE MARROW DEPRESSION [None]
  - ERYTHEMA [None]
  - FATIGUE [None]
  - HAEMATOCRIT DECREASED [None]
  - HAEMOGLOBIN DECREASED [None]
  - MOOD ALTERED [None]
  - MUSCULOSKELETAL STIFFNESS [None]
  - MYALGIA [None]
  - NEUTROPENIA [None]
  - OEDEMA PERIPHERAL [None]
  - PLATELET COUNT DECREASED [None]
  - PSORIASIS [None]
  - PSORIATIC ARTHROPATHY [None]
  - RASH SCALY [None]
  - RED BLOOD CELL COUNT DECREASED [None]
  - RED CELL DISTRIBUTION WIDTH INCREASED [None]
  - SKIN DISORDER [None]
  - SKIN IRRITATION [None]
  - SKIN LESION [None]
  - SLEEP DISORDER [None]
  - WEIGHT DECREASED [None]
  - WHITE BLOOD CELL COUNT DECREASED [None]
